FAERS Safety Report 4287758-X (Version None)
Quarter: 2004Q1

REPORT INFORMATION
  Report Type: 
  Country: None (occurrence: None)
  Receive Date: 20040209
  Receipt Date: 20030915
  Transmission Date: 20041129
  Serious: No
  Sender: FDA-Public Use
  Company Number: US-GLAXOSMITHKLINE-A0425959A

PATIENT
  Age: 80 Year
  Sex: Female

DRUGS (1)
  1. PAXIL [Suspect]
     Dosage: 12.5MG PER DAY
     Route: 048
     Dates: start: 20030819

REACTIONS (1)
  - SOMNOLENCE [None]
